FAERS Safety Report 8758013 (Version 3)
Quarter: 2012Q4

REPORT INFORMATION
  Report Type: 
  Country: US (occurrence: US)
  Receive Date: 20120828
  Receipt Date: 20121001
  Transmission Date: 20130627
  Serious: Yes (Other)
  Sender: FDA-Public Use
  Company Number: US-PFIZER INC-2012206183

PATIENT
  Age: 58 Year
  Sex: Male
  Weight: 90.7 kg

DRUGS (7)
  1. LYRICA [Suspect]
     Indication: PAIN
     Dosage: 50 mg, 2x/day
     Route: 048
     Dates: start: 20120501
  2. LYRICA [Suspect]
     Dosage: 50 mg, 2x/day
     Route: 048
     Dates: start: 20120501
  3. LYRICA [Suspect]
     Dosage: 50 mg, 3x/day
     Route: 048
     Dates: start: 20120501, end: 20120814
  4. HYDROCHLOROTHIAZIDE [Suspect]
     Indication: NEPHROLITHIASIS
     Dosage: 12.5 mg, daily
  5. POTASSIUM CITRATE [Suspect]
     Indication: NEPHROLITHIASIS
     Dosage: 1080 mg, 3x/day
  6. CIMZIA [Concomitant]
     Indication: ARTHRITIS
     Dosage: 400 mg, monthly
  7. SULINDAC [Concomitant]
     Indication: ARTHRITIS
     Dosage: 200 mg, 2x/day

REACTIONS (3)
  - Nephrolithiasis [Unknown]
  - Weight increased [Unknown]
  - Drug ineffective [Unknown]
